FAERS Safety Report 18561439 (Version 1)
Quarter: 2020Q4

REPORT INFORMATION
  Report Type: Spontaneous
  Country: US (occurrence: US)
  Receive Date: 20201130
  Receipt Date: 20201130
  Transmission Date: 20210114
  Serious: No
  Sender: FDA-Public Use
  Company Number: US-ROCHE-2442097

PATIENT
  Sex: Female

DRUGS (11)
  1. ONDANSETRON [Concomitant]
     Active Substance: ONDANSETRON
  2. CRANBERRY. [Concomitant]
     Active Substance: CRANBERRY
  3. HERCEPTIN [Suspect]
     Active Substance: TRASTUZUMAB
     Indication: BREAST CANCER FEMALE
     Route: 065
  4. FASLODEX [Concomitant]
     Active Substance: FULVESTRANT
  5. FENTANYL. [Concomitant]
     Active Substance: FENTANYL
  6. XGEVA [Concomitant]
     Active Substance: DENOSUMAB
  7. HYDROMORPHONE HCL [Concomitant]
     Active Substance: HYDROMORPHONE HYDROCHLORIDE
  8. IBUPROFEN. [Concomitant]
     Active Substance: IBUPROFEN
  9. PERJETA [Concomitant]
     Active Substance: PERTUZUMAB
  10. LEVOTHYROXINE SODIUM. [Concomitant]
     Active Substance: LEVOTHYROXINE SODIUM
  11. OMEPRAZOLE. [Concomitant]
     Active Substance: OMEPRAZOLE

REACTIONS (2)
  - Vomiting [Unknown]
  - Nausea [Unknown]
